FAERS Safety Report 6924015-4 (Version None)
Quarter: 2010Q3

REPORT INFORMATION
  Report Type: 
  Country: None (occurrence: None)
  Receive Date: 20100813
  Receipt Date: 20100809
  Transmission Date: 20110219
  Serious: Yes (Death, Hospitalization)
  Sender: FDA-Public Use
  Company Number: IE-ABBOTT-10P-229-0657856-00

PATIENT
  Sex: Male

DRUGS (1)
  1. HUMIRA [Suspect]
     Indication: CROHN'S DISEASE

REACTIONS (8)
  - ABDOMINAL MASS [None]
  - CACHEXIA [None]
  - HISTIOCYTOSIS HAEMATOPHAGIC [None]
  - INTESTINAL FISTULA [None]
  - MALNUTRITION [None]
  - PSOAS ABSCESS [None]
  - SEPSIS [None]
  - WEIGHT DECREASED [None]
